FAERS Safety Report 10465256 (Version 1)
Quarter: 2014Q3

REPORT INFORMATION
  Report Type: Spontaneous
  Country: US (occurrence: US)
  Receive Date: 20140919
  Receipt Date: 20140919
  Transmission Date: 20150326
  Serious: No
  Sender: FDA-Public Use
  Company Number: US-PFIZER INC-2014259165

PATIENT
  Age: 60 Year
  Sex: Female
  Weight: 104.31 kg

DRUGS (4)
  1. AMITRIPTYLINE [Concomitant]
     Active Substance: AMITRIPTYLINE
     Dosage: UNK
  2. PROZAC [Concomitant]
     Active Substance: FLUOXETINE HYDROCHLORIDE
     Dosage: UNK
  3. NEURONTIN [Suspect]
     Active Substance: GABAPENTIN
     Indication: PSYCHOTIC BEHAVIOUR
     Dosage: UNK
     Route: 048
  4. NEURONTIN [Suspect]
     Active Substance: GABAPENTIN
     Indication: BIPOLAR DISORDER
     Dosage: 900 MG(TAKING THREE CAPSULES OF 300MG IN THE MORNING AND 3 CAPSULES OF 300MG IN THE EVENING), 2X/DAY
     Route: 048
     Dates: end: 2014

REACTIONS (2)
  - Liver disorder [Unknown]
  - Osteoporosis [Unknown]

NARRATIVE: CASE EVENT DATE: 2013
